FAERS Safety Report 21209609 (Version 1)
Quarter: 2022Q3

REPORT INFORMATION
  Report Type: Spontaneous
  Country: KR (occurrence: KR)
  Receive Date: 20220813
  Receipt Date: 20220813
  Transmission Date: 20221026
  Serious: Yes (Other)
  Sender: FDA-Public Use
  Company Number: KR-NOVARTISPH-NVSC2022KR182757

PATIENT
  Age: 4 Year
  Sex: Female
  Weight: 18.5 kg

DRUGS (1)
  1. KYMRIAH [Suspect]
     Active Substance: TISAGENLECLEUCEL
     Indication: Acute lymphocytic leukaemia
     Dosage: 33.0 ML (BAG), ONCE/SINGLE
     Route: 042
     Dates: start: 20220608, end: 20220608

REACTIONS (3)
  - Minimal residual disease [Not Recovered/Not Resolved]
  - CD19 antigen negative [Unknown]
  - Out of specification test results [Unknown]

NARRATIVE: CASE EVENT DATE: 20220810
